FAERS Safety Report 19377482 (Version 1)
Quarter: 2021Q2

REPORT INFORMATION
  Report Type: Spontaneous
  Country: US (occurrence: US)
  Receive Date: 20210605
  Receipt Date: 20210605
  Transmission Date: 20210717
  Serious: No
  Sender: FDA-Public Use
  Company Number: US-SA-2021SA185550

PATIENT
  Age: 62 Year
  Sex: Male

DRUGS (1)
  1. DUPIXENT [Suspect]
     Active Substance: DUPILUMAB
     Dosage: UNK
     Route: 050
     Dates: start: 20210202

REACTIONS (2)
  - Upper-airway cough syndrome [Unknown]
  - Sleep disorder [Unknown]

NARRATIVE: CASE EVENT DATE: 202103
